FAERS Safety Report 8954445 (Version 2)
Quarter: 2013Q1

REPORT INFORMATION
  Report Type: Spontaneous
  Country: US (occurrence: US)
  Receive Date: 20121207
  Receipt Date: 20130227
  Transmission Date: 20140127
  Serious: Yes (Death)
  Sender: FDA-Public Use
  Company Number: US-INCYTE CORPORATION-2012IN002511

PATIENT
  Sex: Male
  Weight: 51.6 kg

DRUGS (3)
  1. JAKAFI [Suspect]
     Indication: MYELOFIBROSIS
     Dosage: 10 MG, QD
     Dates: start: 20120611
  2. PREDNISONE [Concomitant]
  3. PROAIR [Concomitant]

REACTIONS (1)
  - Death [Fatal]
